FAERS Safety Report 23251694 (Version 1)
Quarter: 2023Q4

REPORT INFORMATION
  Report Type: Report from Study
  Country: US (occurrence: US)
  Receive Date: 20231201
  Receipt Date: 20231201
  Transmission Date: 20240109
  Serious: Yes (Hospitalization, Other)
  Sender: FDA-Public Use
  Company Number: US-SHIRE-US202019222

PATIENT
  Age: 78 Year
  Sex: Male

DRUGS (10)
  1. TEDUGLUTIDE [Suspect]
     Active Substance: TEDUGLUTIDE
     Indication: Short-bowel syndrome
     Dosage: 3.94 MILLIGRAM, QD
     Route: 042
     Dates: start: 20190306, end: 20210202
  2. TEDUGLUTIDE [Suspect]
     Active Substance: TEDUGLUTIDE
     Indication: Short-bowel syndrome
     Dosage: 3.94 MILLIGRAM, QD
     Route: 042
     Dates: start: 20190306, end: 20210202
  3. TEDUGLUTIDE [Suspect]
     Active Substance: TEDUGLUTIDE
     Indication: Short-bowel syndrome
     Dosage: 3.94 MILLIGRAM, QD
     Route: 042
     Dates: start: 20190306, end: 20210202
  4. TEDUGLUTIDE [Suspect]
     Active Substance: TEDUGLUTIDE
     Indication: Short-bowel syndrome
     Dosage: 3.94 MILLIGRAM, QD
     Route: 042
     Dates: start: 20190306, end: 20210202
  5. OXYCODONE [Concomitant]
     Active Substance: OXYCODONE
     Indication: Pain management
     Dosage: 5 MILLIGRAM, QD
     Route: 048
  6. NYSTATIN [Concomitant]
     Active Substance: NYSTATIN
     Indication: Anal injury
     Dosage: 100000 INTERNATIONAL UNIT, QD
     Route: 048
  7. MEGACE ES [Concomitant]
     Active Substance: MEGESTROL ACETATE
     Indication: Weight decreased
     Dosage: 625 MILLIGRAM, QD
     Route: 048
  8. MEGACE ES [Concomitant]
     Active Substance: MEGESTROL ACETATE
     Indication: Prophylaxis
  9. VITAMIN C [Concomitant]
     Active Substance: ASCORBIC ACID
     Indication: Vitamin supplementation
     Dosage: 160 MILLIGRAM, QD
     Route: 048
  10. AUGMENTIN [Concomitant]
     Active Substance: AMOXICILLIN\CLAVULANATE POTASSIUM
     Dosage: 875 MILLIGRAM, BID
     Route: 048
     Dates: start: 20201013

REACTIONS (2)
  - Vascular device infection [Recovered/Resolved]
  - Pyrexia [Recovered/Resolved]

NARRATIVE: CASE EVENT DATE: 20200513
